FAERS Safety Report 6932184-5 (Version None)
Quarter: 2010Q3

REPORT INFORMATION
  Report Type: 
  Country: None (occurrence: None)
  Receive Date: 20100819
  Receipt Date: 20100819
  Transmission Date: 20110219
  Serious: Yes (Life-Threatening, Hospitalization, Other)
  Sender: FDA-Public Use
  Company Number: D0068410A

PATIENT
  Sex: Male

DRUGS (5)
  1. AVANDIA [Suspect]
     Route: 048
     Dates: start: 20010122, end: 20070418
  2. LOSARTAN POTASSIUM AND HYDROCHLOROTHIAZIDE [Concomitant]
     Dosage: 62.5MG PER DAY
     Route: 048
  3. VELMETIA [Concomitant]
     Dosage: 1050MG TWICE PER DAY
     Route: 048
  4. MESCORIT [Concomitant]
     Dosage: 850MG PER DAY
     Route: 048
  5. LOCOL [Concomitant]
     Route: 048

REACTIONS (7)
  - BLOOD PRESSURE INCREASED [None]
  - CORONARY ARTERY DISEASE [None]
  - CORONARY ARTERY OCCLUSION [None]
  - CORONARY ARTERY STENOSIS [None]
  - ELECTROCARDIOGRAM CHANGE [None]
  - STENT PLACEMENT [None]
  - WEIGHT INCREASED [None]
